FAERS Safety Report 8633598 (Version 6)
Quarter: 2013Q2

REPORT INFORMATION
  Report Type: Spontaneous
  Country: US (occurrence: US)
  Receive Date: 20120625
  Receipt Date: 20130430
  Transmission Date: 20140414
  Serious: Yes (Other)
  Sender: FDA-Public Use
  Company Number: US-ASTRAZENECA-2012SE41457

PATIENT
  Age: 34 Year
  Sex: Male

DRUGS (3)
  1. SEROQUEL [Suspect]
     Route: 048
  2. SEROQUEL [Suspect]
     Dosage: FOUR TABLETS AT NIGHT, ONE IN THE MORNING
     Route: 048
  3. SEROQUEL [Suspect]
     Route: 048

REACTIONS (4)
  - Convulsion [Unknown]
  - Insomnia [Unknown]
  - Intentional drug misuse [Unknown]
  - Drug dose omission [Unknown]
